FAERS Safety Report 4281074-8 (Version None)
Quarter: 2004Q1

REPORT INFORMATION
  Report Type: 
  Country: None (occurrence: None)
  Receive Date: 20040123
  Receipt Date: 20021220
  Transmission Date: 20041129
  Serious: Yes (Other)
  Sender: FDA-Public Use
  Company Number: HQ5975531DEC2002

PATIENT
  Sex: Female

DRUGS (1)
  1. CORDARONE [Suspect]
     Dosage: ORAL
     Route: 048
     Dates: end: 20021101

REACTIONS (3)
  - MACULAR DEGENERATION [None]
  - OEDEMA PERIPHERAL [None]
  - PULMONARY FIBROSIS [None]
